FAERS Safety Report 25098078 (Version 1)
Quarter: 2025Q1

REPORT INFORMATION
  Report Type: Spontaneous
  Country: FR (occurrence: FR)
  Receive Date: 20250320
  Receipt Date: 20250320
  Transmission Date: 20250409
  Serious: Yes (Hospitalization)
  Sender: AUROBINDO
  Company Number: FR-AFSSAPS-NC2025000316

PATIENT
  Age: 3 Year
  Sex: Female
  Weight: 16 kg

DRUGS (2)
  1. CETIRIZINE [Suspect]
     Active Substance: CETIRIZINE HYDROCHLORIDE
     Indication: Product used for unknown indication
     Route: 048
     Dates: start: 20250129, end: 20250129
  2. BETAMETHASONE [Suspect]
     Active Substance: BETAMETHASONE
     Indication: Influenza
     Route: 048

REACTIONS (2)
  - Somnolence [Recovered/Resolved]
  - Wrong product administered [Recovered/Resolved]

NARRATIVE: CASE EVENT DATE: 20250129
